FAERS Safety Report 10473767 (Version 1)
Quarter: 2014Q3

REPORT INFORMATION
  Report Type: Spontaneous
  Country: US (occurrence: US)
  Receive Date: 20140924
  Receipt Date: 20140924
  Transmission Date: 20150326
  Serious: Yes (Other)
  Sender: FDA-Public Use
  Company Number: PHHY2014US123750

PATIENT
  Age: 54 Year
  Sex: Female

DRUGS (3)
  1. CARBOPLATIN. [Suspect]
     Active Substance: CARBOPLATIN
     Indication: BREAST CANCER
  2. BEVACIZUMAB [Suspect]
     Active Substance: BEVACIZUMAB
     Indication: BREAST CANCER
  3. PACLITAXEL. [Suspect]
     Active Substance: PACLITAXEL
     Indication: BREAST CANCER

REACTIONS (11)
  - Hypertension [Recovered/Resolved]
  - Proteinuria [Recovered/Resolved]
  - Renal impairment [Recovered/Resolved]
  - Thrombotic microangiopathy [Unknown]
  - Renal failure acute [Unknown]
  - Haematuria [Unknown]
  - Renal failure chronic [Unknown]
  - Haemolytic anaemia [Recovered/Resolved]
  - Red blood cell schistocytes present [Unknown]
  - Renal ischaemia [Unknown]
  - Nephropathy [Unknown]
